FAERS Safety Report 18792728 (Version 2)
Quarter: 2021Q1

REPORT INFORMATION
  Report Type: Spontaneous
  Country: US (occurrence: US)
  Receive Date: 20210127
  Receipt Date: 20210128
  Transmission Date: 20210419
  Serious: Yes (Hospitalization, Other)
  Sender: FDA-Public Use
  Company Number: US-ALLERGAN-2034721US

PATIENT
  Sex: Female

DRUGS (2)
  1. ALORA [Suspect]
     Active Substance: ESTRADIOL
     Indication: HORMONE REPLACEMENT THERAPY
  2. ALORA [Suspect]
     Active Substance: ESTRADIOL
     Indication: MENOPAUSE
     Dosage: 1 DF, BI?WEEKLY
     Route: 062

REACTIONS (15)
  - Adverse event [Unknown]
  - Vomiting [Recovered/Resolved]
  - Product packaging issue [Unknown]
  - Product adhesion issue [Unknown]
  - Feeling jittery [Recovering/Resolving]
  - Drug ineffective [Unknown]
  - Vision blurred [Recovered/Resolved]
  - Migraine with aura [Not Recovered/Not Resolved]
  - Insomnia [Recovered/Resolved]
  - Skin injury [Unknown]
  - Abdominal discomfort [Unknown]
  - Dizziness [Not Recovered/Not Resolved]
  - Breast neoplasm [Unknown]
  - Suicidal ideation [Unknown]
  - Depression [Not Recovered/Not Resolved]

NARRATIVE: CASE EVENT DATE: 2012
